FAERS Safety Report 4762425-4 (Version None)
Quarter: 2005Q3

REPORT INFORMATION
  Report Type: 
  Country: None (occurrence: None)
  Receive Date: 20050901
  Receipt Date: 20050106
  Transmission Date: 20060218
  Serious: Yes (Death)
  Sender: FDA-Public Use
  Company Number: MYVW-PR-0412S-0079

PATIENT
  Age: 67 Year
  Sex: Male

DRUGS (2)
  1. MYOVIEW [Suspect]
     Indication: DRUG USE FOR UNKNOWN INDICATION
     Dosage: 373.7 MBQ (SINGLE DOSE) I.V.; 1121.1 MGQ (SINGLE DOSE) I.V.
     Route: 042
     Dates: start: 20041229, end: 20041229
  2. ADENOSINE [Concomitant]

REACTIONS (2)
  - DYSARTHRIA [None]
  - TONGUE OEDEMA [None]
